FAERS Safety Report 11292257 (Version 3)
Quarter: 2015Q3

REPORT INFORMATION
  Report Type: Spontaneous
  Country: US (occurrence: US)
  Receive Date: 20150722
  Receipt Date: 20150825
  Transmission Date: 20151125
  Serious: Yes (Hospitalization)
  Sender: FDA-Public Use
  Company Number: US-ACTELION-A-NJ2015-121089

PATIENT
  Age: 47 Year
  Sex: Male

DRUGS (3)
  1. VELETRI [Suspect]
     Active Substance: EPOPROSTENOL
     Indication: PULMONARY ARTERIAL HYPERTENSION
     Dosage: 107 NG/KG, PER MIN
     Route: 042
     Dates: start: 20150217
  2. REVATIO [Concomitant]
     Active Substance: SILDENAFIL CITRATE
  3. COUMADIN [Concomitant]
     Active Substance: WARFARIN SODIUM

REACTIONS (6)
  - Multiple fractures [Unknown]
  - Injury [Unknown]
  - Contusion [Unknown]
  - Multiple injuries [Unknown]
  - Road traffic accident [Unknown]
  - Pneumothorax traumatic [Unknown]

NARRATIVE: CASE EVENT DATE: 20150713
